FAERS Safety Report 25870268 (Version 3)
Quarter: 2025Q4

REPORT INFORMATION
  Report Type: Other
  Country: US (occurrence: US)
  Receive Date: 20251001
  Receipt Date: 20251031
  Transmission Date: 20260117
  Serious: No
  Sender: TRAVERE THERAPEUTICS
  Company Number: US-TRAVERE-2025TVT01551

PATIENT
  Age: 62 Year
  Sex: Female

DRUGS (1)
  1. FILSPARI [Suspect]
     Active Substance: SPARSENTAN
     Indication: IgA nephropathy
     Route: 048
     Dates: start: 202508

REACTIONS (18)
  - Hypotension [None]
  - Dizziness postural [None]
  - Asthenia [None]
  - Paraesthesia [Unknown]
  - Arthralgia [Unknown]
  - Joint swelling [Unknown]
  - Fatigue [None]
  - Musculoskeletal pain [Unknown]
  - Loss of personal independence in daily activities [Unknown]
  - Decreased appetite [Unknown]
  - Drug intolerance [Unknown]
  - Back pain [Unknown]
  - Muscle spasms [Unknown]
  - Myalgia [Unknown]
  - Musculoskeletal stiffness [Unknown]
  - Discomfort [Unknown]
  - Skin lesion [Unknown]
  - Product administration error [Unknown]

NARRATIVE: CASE EVENT DATE: 20250801
